FAERS Safety Report 14994525 (Version 1)
Quarter: 2018Q2

REPORT INFORMATION
  Report Type: Spontaneous
  Country: US (occurrence: US)
  Receive Date: 20180518
  Receipt Date: 20180518
  Transmission Date: 20180711
  Serious: Yes (Hospitalization)
  Sender: FDA-Public Use
  Company Number: None

PATIENT
  Age: 61 Year
  Sex: Male
  Weight: 123.38 kg

DRUGS (1)
  1. DEXTROSE/HEPARIN [Suspect]
     Active Substance: DEXTROSE\HEPARIN
     Indication: ATRIAL FIBRILLATION
     Dates: start: 20180218, end: 20180218

REACTIONS (1)
  - Spontaneous heparin-induced thrombocytopenia syndrome [None]

NARRATIVE: CASE EVENT DATE: 20180219
